FAERS Safety Report 4647676-1 (Version None)
Quarter: 2005Q2

REPORT INFORMATION
  Report Type: 
  Country: None (occurrence: None)
  Receive Date: 20050426
  Receipt Date: 20050411
  Transmission Date: 20051028
  Serious: Yes (Hospitalization)
  Sender: FDA-Public Use
  Company Number: US-2005-005367

PATIENT
  Age: 36 Year
  Sex: Male

DRUGS (12)
  1. BETASERON [Suspect]
     Indication: SECONDARY PROGRESSIVE MULTIPLE SCLEROSIS
     Dosage: 8 MIU, EVERY 2D, SUBCUTANEOUS
     Route: 058
     Dates: start: 20040901
  2. OXYCONTIN [Concomitant]
  3. LORTAB [Concomitant]
  4. DIASTAT ^ATHENA^ (DIAZEPAM) [Concomitant]
  5. DALMANE [Concomitant]
  6. DILANTIN/AUS/(PHENYTOIN SODIUM) [Concomitant]
  7. BACLOFEN [Concomitant]
  8. NEUONTIN (GABAPENTIN) [Concomitant]
  9. ANDROGEL [Concomitant]
  10. XANAX [Concomitant]
  11. PRILOSEC [Concomitant]
  12. VIAGRA [Concomitant]

REACTIONS (3)
  - FASCIITIS [None]
  - INJECTION SITE INFECTION [None]
  - THERAPY NON-RESPONDER [None]
